FAERS Safety Report 9577568 (Version 1)
Quarter: 2013Q4

REPORT INFORMATION
  Report Type: Spontaneous
  Country: US (occurrence: US)
  Receive Date: 20131001
  Receipt Date: 20131001
  Transmission Date: 20140711
  Serious: No
  Sender: FDA-Public Use
  Company Number: US-AMGEN-USASP2013008358

PATIENT
  Sex: Female

DRUGS (6)
  1. ENBREL [Suspect]
     Indication: RHEUMATOID ARTHRITIS
     Dosage: 50 MG, QWK
  2. FOSAMAX [Concomitant]
     Dosage: 10 MG, UNK
  3. PLAQUENIL                          /00072602/ [Concomitant]
     Dosage: 200 MG, UNK
  4. METHOTREXATE [Concomitant]
     Dosage: 2.5 MG, UNK
  5. SULFASALAZIN [Concomitant]
     Dosage: 500 MG, UNK
  6. FOLIC ACID [Concomitant]
     Dosage: UNK

REACTIONS (2)
  - Mobility decreased [Unknown]
  - Musculoskeletal stiffness [Unknown]
